FAERS Safety Report 23106537 (Version 3)
Quarter: 2023Q4

REPORT INFORMATION
  Report Type: Report from Study
  Country: NL (occurrence: NL)
  Receive Date: 20231026
  Receipt Date: 20231128
  Transmission Date: 20240110
  Serious: Yes (Other)
  Sender: FDA-Public Use
  Company Number: NL-BEH-2023164634

PATIENT
  Age: 60 Year
  Sex: Female

DRUGS (1)
  1. HIZENTRA [Suspect]
     Active Substance: HUMAN IMMUNOGLOBULIN G
     Indication: Encephalitis autoimmune
     Dosage: 16 GRAM, QW
     Route: 058
     Dates: start: 20231019

REACTIONS (7)
  - Epilepsy [Recovered/Resolved]
  - Malaise [Recovered/Resolved]
  - No adverse event [Unknown]
  - Off label use [Unknown]
  - Feeling of body temperature change [Recovered/Resolved]
  - Hypertension [Recovered/Resolved]
  - Rash macular [Recovered/Resolved]

NARRATIVE: CASE EVENT DATE: 20231019
